FAERS Safety Report 17327170 (Version 1)
Quarter: 2020Q1

REPORT INFORMATION
  Report Type: Spontaneous
  Country: FR (occurrence: FR)
  Receive Date: 20200127
  Receipt Date: 20200127
  Transmission Date: 20200409
  Serious: Yes (Hospitalization)
  Sender: FDA-Public Use
  Company Number: FR-MYLANLABS-2020M1008160

PATIENT
  Age: 87 Year
  Sex: Male
  Weight: 61 kg

DRUGS (8)
  1. AMOXICILLIN. [Suspect]
     Active Substance: AMOXICILLIN
     Indication: INFECTION
     Dosage: 6 GRAM, QD
     Route: 048
     Dates: start: 20191018
  2. TRAMADOL. [Suspect]
     Active Substance: TRAMADOL
     Indication: PAIN
     Dosage: ? LA DEMANDE
     Route: 048
     Dates: start: 20191007
  3. C?FOTAXIME MYLAN 1 G, POUDRE POUR SOLUTION INJECTABLE (IM-IV) [Suspect]
     Active Substance: CEFOTAXIME SODIUM
     Indication: INFECTION
     Dosage: 4 GRAM, QD
     Route: 042
     Dates: start: 20191018, end: 20191023
  4. DOLIPRANE [Suspect]
     Active Substance: ACETAMINOPHEN
     Indication: PAIN
     Dosage: NON RENSEIGN?E
     Route: 048
     Dates: start: 20191010
  5. LOVENOX [Suspect]
     Active Substance: ENOXAPARIN SODIUM
     Indication: THROMBOSIS PROPHYLAXIS
     Dosage: NON RENSEIGN?E
     Route: 058
     Dates: start: 20191007
  6. FUROSEMIDE. [Concomitant]
     Active Substance: FUROSEMIDE
     Dosage: NON RENSEIGN?E
     Route: 048
     Dates: start: 20191008, end: 20191021
  7. CEFTRIAXONE MYLAN [Suspect]
     Active Substance: CEFTRIAXONE
     Indication: INFECTION
     Dosage: NON RENSEIGN?E
     Route: 042
     Dates: start: 20191023
  8. NEFOPAM                            /00396102/ [Suspect]
     Active Substance: NEFOPAM HYDROCHLORIDE
     Indication: PAIN
     Dosage: NON RENSEIGN?E
     Route: 048
     Dates: start: 20191010

REACTIONS (1)
  - Cholestasis [Not Recovered/Not Resolved]

NARRATIVE: CASE EVENT DATE: 20191016
